FAERS Safety Report 24053826 (Version 1)
Quarter: 2024Q3

REPORT INFORMATION
  Report Type: Spontaneous
  Country: IT (occurrence: IT)
  Receive Date: 20240705
  Receipt Date: 20240705
  Transmission Date: 20241017
  Serious: Yes (Hospitalization)
  Sender: SANDOZ
  Company Number: IT-STADA-01262121

PATIENT
  Age: 64 Year
  Sex: Female

DRUGS (9)
  1. MOMETASONE FUROATE [Suspect]
     Active Substance: MOMETASONE FUROATE
     Indication: Chronic rhinosinusitis with nasal polyps
     Dosage: SPRAY
     Route: 045
  2. METHYLPREDNISOLONE [Suspect]
     Active Substance: METHYLPREDNISOLONE
     Indication: Eosinophilia
     Dosage: RECEIVED FOR 3 DAYS
     Route: 042
  3. PREDNISONE [Suspect]
     Active Substance: PREDNISONE
     Dosage: RECEIVED FOR 7?10 DAYS
     Route: 048
  4. PREDNISONE [Suspect]
     Active Substance: PREDNISONE
     Indication: Chronic rhinosinusitis with nasal polyps
     Dosage: 50.000MG
     Route: 048
  5. BECLOMETHASONE\FORMOTEROL [Concomitant]
     Active Substance: BECLOMETHASONE\FORMOTEROL
     Indication: Chronic rhinosinusitis with nasal polyps
     Dosage: RECEIVED 800/24 ?G/DAY
     Route: 055
  6. DUPILUMAB [Concomitant]
     Active Substance: DUPILUMAB
     Indication: Chronic rhinosinusitis with nasal polyps
     Dosage: RECEIVED 600MG, WHICH WAS FOLLOWED BY 300MG SC EVERY 2 WEEKS
     Route: 058
  7. MONTELUKAST [Concomitant]
     Active Substance: MONTELUKAST SODIUM
     Indication: Chronic rhinosinusitis with nasal polyps
     Route: 065
  8. ALBUTEROL [Concomitant]
     Active Substance: ALBUTEROL
     Indication: Chronic rhinosinusitis with nasal polyps
     Dosage: 400.000UG
     Route: 055
  9. TIOTROPIUM BROMIDE [Concomitant]
     Active Substance: TIOTROPIUM BROMIDE
     Indication: Chronic rhinosinusitis with nasal polyps
     Dosage: 5.000UG QD
     Route: 065

REACTIONS (2)
  - Cardiac ventricular thrombosis [Recovering/Resolving]
  - Drug ineffective [Unknown]
